FAERS Safety Report 16883211 (Version 1)
Quarter: 2019Q4

REPORT INFORMATION
  Report Type: Spontaneous
  Country: US (occurrence: US)
  Receive Date: 20191004
  Receipt Date: 20191004
  Transmission Date: 20200122
  Serious: No
  Sender: FDA-Public Use
  Company Number: US-SA-2019SA271955

PATIENT
  Sex: Female

DRUGS (2)
  1. LANTUS [Suspect]
     Active Substance: INSULIN GLARGINE
     Dosage: 80 U, BID
     Route: 065
  2. LANTUS [Suspect]
     Active Substance: INSULIN GLARGINE
     Dosage: 90 U, BID
     Route: 065

REACTIONS (4)
  - Inappropriate schedule of product administration [Unknown]
  - Mobility decreased [Unknown]
  - Wrong technique in product usage process [Unknown]
  - Asthenia [Unknown]
